FAERS Safety Report 5455972-3 (Version None)
Quarter: 2007Q3

REPORT INFORMATION
  Report Type: 
  Country: None (occurrence: None)
  Receive Date: 20070918
  Receipt Date: 20070907
  Transmission Date: 20080115
  Serious: Yes (Hospitalization)
  Sender: FDA-Public Use
  Company Number: JP-ROCHE-514935

PATIENT
  Age: 59 Year
  Sex: Female

DRUGS (1)
  1. ROCEPHIN [Suspect]
     Route: 042
     Dates: start: 20070801, end: 20070801

REACTIONS (1)
  - ANAPHYLACTIC SHOCK [None]
